FAERS Safety Report 11442874 (Version 1)
Quarter: 2015Q3

REPORT INFORMATION
  Report Type: Spontaneous
  Country: JP (occurrence: JP)
  Receive Date: 20150901
  Receipt Date: 20150901
  Transmission Date: 20151125
  Serious: Yes (Hospitalization)
  Sender: FDA-Public Use
  Company Number: JP-PFIZER INC-2015107296

PATIENT
  Age: 66 Year
  Sex: Male
  Weight: 52 kg

DRUGS (9)
  1. ATELEC [Concomitant]
     Active Substance: CILNIDIPINE
     Indication: HYPERTENSION
     Dosage: UNK
     Route: 048
  2. ESLAX [Concomitant]
     Active Substance: ROCURONIUM BROMIDE
     Indication: ENDOTRACHEAL INTUBATION
     Dosage: 50 MG, SINGLE (ONCE)
     Route: 042
     Dates: start: 20150323
  3. OMEPRAZOLE. [Concomitant]
     Active Substance: OMEPRAZOLE
     Indication: PROPHYLAXIS AGAINST GASTROINTESTINAL ULCER
     Dosage: 20 MG, 2X/DAY
     Route: 042
     Dates: start: 20150323, end: 20150324
  4. SULBACILLIN [Concomitant]
     Active Substance: AMPICILLIN SODIUM\SULBACTAM SODIUM
     Indication: PNEUMONIA ASPIRATION
     Dosage: 1.5 G, 2X/DAY
     Route: 042
     Dates: start: 20150323, end: 20150324
  5. FOSPHENYTOIN SODIUM. [Suspect]
     Active Substance: FOSPHENYTOIN SODIUM
     Indication: EPILEPSY
     Dosage: 1125 MG, SINGLE (ONCE)
     Route: 041
     Dates: start: 20150323, end: 20150323
  6. MIDAZOLAM [Concomitant]
     Active Substance: MIDAZOLAM\MIDAZOLAM HYDROCHLORIDE
     Indication: ENDOTRACHEAL INTUBATION
     Dosage: 10 MG, SINGLE (ONCE)
     Route: 042
     Dates: start: 20150323
  7. FENTANYL. [Concomitant]
     Active Substance: FENTANYL
     Indication: ANALGESIC THERAPY
     Dosage: 10 ?G/HR FOR 6 HOURS
     Route: 042
     Dates: start: 20150323, end: 20150324
  8. FENTANYL. [Concomitant]
     Active Substance: FENTANYL
     Indication: SEDATION
  9. FOSPHENYTOIN SODIUM. [Suspect]
     Active Substance: FOSPHENYTOIN SODIUM
     Indication: STATUS EPILEPTICUS

REACTIONS (5)
  - Liver function test abnormal [Recovering/Resolving]
  - Renal impairment [Recovered/Resolved]
  - Platelet count decreased [Recovering/Resolving]
  - Coagulation test abnormal [Recovered/Resolved]
  - Disease progression [Recovering/Resolving]

NARRATIVE: CASE EVENT DATE: 201503
